FAERS Safety Report 7430300-2 (Version None)
Quarter: 2011Q2

REPORT INFORMATION
  Report Type: 
  Country: None (occurrence: None)
  Receive Date: 20110421
  Receipt Date: 20110418
  Transmission Date: 20111010
  Serious: Yes (Death, Life-Threatening, Other)
  Sender: FDA-Public Use
  Company Number: CN-ELI_LILLY_AND_COMPANY-CN201104005337

PATIENT
  Sex: Male

DRUGS (5)
  1. FOLIC ACID [Concomitant]
  2. VITAMIN B-12 [Concomitant]
  3. CISPLATIN [Concomitant]
     Indication: OESOPHAGEAL CARCINOMA
     Dosage: 75 MG, UNK
     Route: 042
     Dates: start: 20110309
  4. ALIMTA [Suspect]
     Indication: OESOPHAGEAL CARCINOMA
     Dosage: 800 MG, UNK
     Route: 042
     Dates: start: 20110309
  5. DEXAMETHASONE [Concomitant]

REACTIONS (2)
  - DEATH [None]
  - BONE MARROW FAILURE [None]
